FAERS Safety Report 5159206-9 (Version None)
Quarter: 2006Q4

REPORT INFORMATION
  Report Type: 
  Country: None (occurrence: None)
  Receive Date: 20061117
  Receipt Date: 20061114
  Transmission Date: 20070319
  Serious: Yes (Hospitalization)
  Sender: FDA-Public Use
  Company Number: HQWYE661127OCT06

PATIENT
  Age: 60 Year
  Sex: Male

DRUGS (8)
  1. CORDARONE [Suspect]
     Indication: ATRIAL FIBRILLATION
     Dosage: 200 MG 3X PER 1 DAY, ORAL
     Route: 048
     Dates: start: 20060701, end: 20060101
  2. CORDARONE [Suspect]
     Indication: MYOCARDIAL ISCHAEMIA
     Dosage: 200 MG 3X PER 1 DAY, ORAL
     Route: 048
     Dates: start: 20060701, end: 20060101
  3. AMIODARONE MERCK (AMIODARONE, ) [Suspect]
     Indication: ATRIAL FIBRILLATION
     Dosage: 150 MG 1X PER 1 DAY, INTRAVENOUS
     Route: 042
     Dates: start: 20060701, end: 20060701
  4. AMIODARONE MERCK (AMIODARONE, ) [Suspect]
     Indication: MYOCARDIAL ISCHAEMIA
     Dosage: 150 MG 1X PER 1 DAY, INTRAVENOUS
     Route: 042
     Dates: start: 20060701, end: 20060701
  5. DIGOXIN [Concomitant]
  6. SPIRONOLACTONE [Concomitant]
  7. ARGININE ASPARTATE (ARGININE ASPARTATE) [Concomitant]
  8. ARGININE GLUTAMATE (ARGININE GLUTAMATE) [Concomitant]

REACTIONS (6)
  - CONDITION AGGRAVATED [None]
  - DERMATITIS ALLERGIC [None]
  - LEUKOCYTOSIS [None]
  - RASH PAPULAR [None]
  - RED BLOOD CELL SEDIMENTATION RATE INCREASED [None]
  - STEVENS-JOHNSON SYNDROME [None]
